FAERS Safety Report 7911642-0 (Version None)
Quarter: 2011Q4

REPORT INFORMATION
  Report Type: 
  Country: None (occurrence: None)
  Receive Date: 20111114
  Receipt Date: 20111114
  Transmission Date: 20120403
  Serious: Yes (Other)
  Sender: FDA-Public Use
  Company Number: None

PATIENT
  Age: 44 Year
  Sex: Female
  Weight: 61.234 kg

DRUGS (1)
  1. DEPAKOTE [Suspect]
     Indication: DEPRESSION
     Dosage: 500 MG
     Route: 048
     Dates: start: 20080408, end: 20080413

REACTIONS (6)
  - CONVULSION [None]
  - MIGRAINE [None]
  - AMMONIA INCREASED [None]
  - AMNESIA [None]
  - HEADACHE [None]
  - DRUG HYPERSENSITIVITY [None]
